FAERS Safety Report 25433573 (Version 2)
Quarter: 2025Q3

REPORT INFORMATION
  Report Type: Report from Study
  Country: CN (occurrence: CN)
  Receive Date: 20250613
  Receipt Date: 20250702
  Transmission Date: 20251020
  Serious: Yes (Hospitalization)
  Sender: BAXTER
  Company Number: CN-BAXTER-2025BAX016619

PATIENT
  Age: 57 Year
  Sex: Male
  Weight: 95 kg

DRUGS (7)
  1. CYCLOPHOSPHAMIDE [Suspect]
     Active Substance: CYCLOPHOSPHAMIDE
     Indication: Follicular lymphoma
     Dosage: 1588.5 MG, EVERY 3 WK
     Route: 042
     Dates: start: 20250521
  2. DOXORUBICIN [Suspect]
     Active Substance: DOXORUBICIN
     Indication: Follicular lymphoma
     Dosage: 105.9 MG, EVERY 3 WK
     Route: 042
     Dates: start: 20250521
  3. VINCRISTINE [Suspect]
     Active Substance: VINCRISTINE
     Indication: Follicular lymphoma
     Dosage: 2 MG, EVERY 3 WK
     Route: 042
     Dates: start: 20250521
  4. RITUXIMAB [Suspect]
     Active Substance: RITUXIMAB
     Indication: Follicular lymphoma
     Dosage: 794 MG, EVERY 3 WK
     Route: 042
     Dates: start: 20250521
  5. PREDNISONE [Suspect]
     Active Substance: PREDNISONE
     Indication: Follicular lymphoma
     Dosage: 100 MG, QD, EVERY 1 DAYS C1-6, D1-5
     Route: 048
     Dates: start: 20250521, end: 20250525
  6. ENTECAVIR [Concomitant]
     Active Substance: ENTECAVIR
     Indication: Antiviral prophylaxis
     Dosage: 0.5 MG, QD
     Route: 065
     Dates: start: 20250513
  7. RIVAROXABAN [Concomitant]
     Active Substance: RIVAROXABAN
     Indication: Embolism
     Dosage: 15 MG, BID, 2 / DAYS
     Dates: start: 20250523

REACTIONS (1)
  - Enteritis [Recovered/Resolved]

NARRATIVE: CASE EVENT DATE: 20250529
